FAERS Safety Report 4914294-7 (Version None)
Quarter: 2006Q1

REPORT INFORMATION
  Report Type: 
  Country: None (occurrence: None)
  Receive Date: 20060216
  Receipt Date: 20060126
  Transmission Date: 20060701
  Serious: Yes (Death)
  Sender: FDA-Public Use
  Company Number: US-ABBOTT-06P-163-0323525-00

PATIENT
  Age: 28 Year
  Sex: Male
  Weight: 79 kg

DRUGS (2)
  1. VALPROIC ACID TABLETS [Suspect]
     Indication: SUICIDE ATTEMPT
     Route: 048
  2. VALPROIC ACID TABLETS [Suspect]
     Indication: EPILEPSY
     Route: 048

REACTIONS (3)
  - COMPLETED SUICIDE [None]
  - INTENTIONAL DRUG MISUSE [None]
  - OVERDOSE [None]
